FAERS Safety Report 4732901-9 (Version None)
Quarter: 2005Q3

REPORT INFORMATION
  Report Type: 
  Country: None (occurrence: None)
  Receive Date: 20050803
  Receipt Date: 20050503
  Transmission Date: 20060218
  Serious: No
  Sender: FDA-Public Use
  Company Number: US-GLAXOSMITHKLINE-A0557100A

PATIENT
  Age: 67 Year
  Sex: Male
  Weight: 113.6 kg

DRUGS (5)
  1. AVANDAMET [Suspect]
     Route: 048
     Dates: start: 20041213, end: 20050502
  2. AVANDIA [Suspect]
     Dosage: 4MG TWICE PER DAY
     Route: 048
     Dates: start: 20050502
  3. METFORMIN [Suspect]
     Dosage: 1000MG TWICE PER DAY
     Dates: start: 20050502
  4. LOTENSIN [Concomitant]
     Dosage: 40MG PER DAY
     Route: 048
     Dates: start: 20041213
  5. VYTORIN [Concomitant]
     Route: 048
     Dates: start: 20041213

REACTIONS (3)
  - BLOOD GLUCOSE [None]
  - DRUG INEFFECTIVE [None]
  - POLLAKIURIA [None]
